FAERS Safety Report 9805180 (Version 1)
Quarter: 2014Q1

REPORT INFORMATION
  Report Type: Other
  Country: JP (occurrence: JP)
  Receive Date: 20140109
  Receipt Date: 20140109
  Transmission Date: 20141002
  Serious: Yes (Hospitalization, Other)
  Sender: FDA-Public Use
  Company Number: JP-BRISTOL-MYERS SQUIBB COMPANY-19960970

PATIENT
  Age: 9 Decade
  Sex: Male

DRUGS (4)
  1. METGLUCO [Suspect]
     Indication: DIABETES MELLITUS
     Route: 048
  2. MELBIN [Suspect]
     Indication: DIABETES MELLITUS
     Route: 048
  3. GLIBENCLAMIDE [Suspect]
     Indication: DIABETES MELLITUS
     Route: 048
  4. VILDAGLIPTIN [Suspect]
     Indication: DIABETES MELLITUS
     Route: 048

REACTIONS (1)
  - Hypoglycaemic coma [Recovered/Resolved]
